FAERS Safety Report 22086384 (Version 2)
Quarter: 2023Q1

REPORT INFORMATION
  Report Type: Report from Study
  Country: US (occurrence: US)
  Receive Date: 20230312
  Receipt Date: 20230313
  Transmission Date: 20230418
  Serious: Yes (Death)
  Sender: FDA-Public Use
  Company Number: US-ABBVIE-4337239

PATIENT
  Age: 91 Year
  Sex: Male
  Weight: 80 kg

DRUGS (1)
  1. CREON [Suspect]
     Active Substance: PANCRELIPASE AMYLASE\PANCRELIPASE LIPASE\PANCRELIPASE PROTEASE
     Indication: Pancreatitis chronic
     Dosage: 2 PER MEAL, 1 PER SNACK?STRENGTH-24000 UNIT?START DATE TEXT: AT LEAST 15-20 YEARS
     Route: 048
     Dates: end: 20230307

REACTIONS (2)
  - Cardiac failure [Fatal]
  - Chronic obstructive pulmonary disease [Not Recovered/Not Resolved]

NARRATIVE: CASE EVENT DATE: 20230307
